FAERS Safety Report 16509029 (Version 1)
Quarter: 2019Q3

REPORT INFORMATION
  Report Type: Spontaneous
  Country: US (occurrence: US)
  Receive Date: 20190701
  Receipt Date: 20190701
  Transmission Date: 20191004
  Serious: Yes (Hospitalization)
  Sender: FDA-Public Use
  Company Number: None

PATIENT
  Age: 82 Year
  Sex: Male

DRUGS (1)
  1. SEPTRA DS [Suspect]
     Active Substance: SULFAMETHOXAZOLE\TRIMETHOPRIM
     Indication: SKIN INFECTION
     Route: 048
     Dates: start: 20190611, end: 20190618

REACTIONS (2)
  - Burning sensation [None]
  - Erythema multiforme [None]

NARRATIVE: CASE EVENT DATE: 20190618
